FAERS Safety Report 5063154-2 (Version None)
Quarter: 2006Q3

REPORT INFORMATION
  Report Type: 
  Country: None (occurrence: None)
  Receive Date: 20060727
  Receipt Date: 20060727
  Transmission Date: 20061208
  Serious: Yes (Death)
  Sender: FDA-Public Use
  Company Number: None

PATIENT
  Age: 24 Year
  Sex: Female

DRUGS (2)
  1. MIFEPRISTONE [Suspect]
     Indication: ABORTION INDUCED
     Dosage: 200 MG
     Dates: start: 20060302, end: 20060302
  2. MISOPROSTOL [Suspect]
     Dosage: 800 MICROG
     Dates: start: 20060303, end: 20060303

REACTIONS (3)
  - DRUG EXPOSURE DURING PREGNANCY [None]
  - SEPTIC SHOCK [None]
  - TOXIC SHOCK SYNDROME [None]
